FAERS Safety Report 5775922-X (Version None)
Quarter: 2008Q2

REPORT INFORMATION
  Report Type: 
  Country: None (occurrence: None)
  Receive Date: 20080617
  Receipt Date: 20080603
  Transmission Date: 20081010
  Serious: Yes (Hospitalization)
  Sender: FDA-Public Use
  Company Number: JP-PFIZER INC-2008049905

PATIENT
  Age: 69 Year
  Sex: Male

DRUGS (5)
  1. AMLODIPINE [Suspect]
     Dosage: DAILY DOSE:10MG-TEXT:10 MG-FREQ:DAILY
     Route: 048
  2. DIOVANE [Suspect]
     Dosage: DAILY DOSE:80MG-TEXT:80 MG-FREQ:DAILY
     Route: 048
  3. LOPRESSOR [Suspect]
     Dosage: DAILY DOSE:80MG-TEXT:80 MG-FREQ:DAILY
     Route: 048
  4. ZANTAC [Concomitant]
     Dosage: DAILY DOSE:300MG-TEXT:300 MG-FREQ:DAILY
  5. URINORM [Concomitant]
     Dosage: DAILY DOSE:50MG-TEXT:50 MG-FREQ:DAILY
     Route: 048

REACTIONS (1)
  - BLOOD CREATININE INCREASED [None]
